FAERS Safety Report 9263274 (Version 1)
Quarter: 2013Q2

REPORT INFORMATION
  Report Type: Spontaneous
  Country: JP (occurrence: JP)
  Receive Date: 20130430
  Receipt Date: 20130430
  Transmission Date: 20140414
  Serious: Yes (Other)
  Sender: FDA-Public Use
  Company Number: JP-PFIZER INC-2013077460

PATIENT
  Age: 32 Year
  Sex: Female

DRUGS (2)
  1. IRINOTECAN HCL [Suspect]
     Indication: MALIGNANT PERITONEAL NEOPLASM
     Dosage: UNK, ONCE DAILY; 1 COURSE
     Route: 041
  2. CISPLATIN [Concomitant]
     Indication: MALIGNANT PERITONEAL NEOPLASM
     Dosage: 1 COURSE

REACTIONS (3)
  - Bone marrow failure [Unknown]
  - Diarrhoea [Unknown]
  - Incontinence [Unknown]
